FAERS Safety Report 5041075-9 (Version None)
Quarter: 2006Q2

REPORT INFORMATION
  Report Type: 
  Country: None (occurrence: None)
  Receive Date: 20060626
  Receipt Date: 20060612
  Transmission Date: 20061013
  Serious: Yes (Other)
  Sender: FDA-Public Use
  Company Number: 430030M06USA

PATIENT
  Age: 36 Year
  Sex: Male

DRUGS (1)
  1. NOVANTRONE [Suspect]
     Indication: MULTIPLE SCLEROSIS
     Dosage: 9 MG/M2, ONCE, INTRAVENOUS
     Route: 042
     Dates: start: 20060601, end: 20060601

REACTIONS (1)
  - DEEP VEIN THROMBOSIS [None]
